FAERS Safety Report 7094304-4 (Version None)
Quarter: 2010Q4

REPORT INFORMATION
  Report Type: 
  Country: None (occurrence: None)
  Receive Date: 20101110
  Receipt Date: 20101029
  Transmission Date: 20110411
  Serious: Yes (Other)
  Sender: FDA-Public Use
  Company Number: US-ELI_LILLY_AND_COMPANY-US201007006825

PATIENT
  Sex: Female

DRUGS (24)
  1. FORTEO [Suspect]
     Indication: OSTEOPOROSIS
     Dosage: 20 UG, DAILY (1/D)
     Dates: start: 20100127
  2. FORTEO [Suspect]
     Dosage: 20 UG, DAILY (1/D)
  3. FORTEO [Suspect]
     Dosage: 20 UG, DAILY (1/D)
  4. FISH OIL [Concomitant]
  5. NEUROTIN                           /00949202/ [Concomitant]
  6. LYRICA [Concomitant]
     Dosage: 75 MG, UNK
  7. TYLENOL (CAPLET) [Concomitant]
     Indication: DISCOMFORT
  8. MULTI-VITAMIN [Concomitant]
  9. CALCIUM W/VITAMIN D NOS [Concomitant]
     Dosage: 1200 MG, DAILY (1/D)
  10. VITAMIN D [Concomitant]
     Dosage: 2000 IU, UNK
  11. SUPER B COMPLEX [Concomitant]
  12. MAGNESIUM [Concomitant]
  13. FERROUS SULFATE [Concomitant]
  14. ASCORBIC ACID [Concomitant]
  15. LASIX [Concomitant]
     Dosage: 20 MG, UNK
  16. CLONAZEPAM [Concomitant]
  17. ADDERALL 10 [Concomitant]
     Dosage: 30 MG, DAILY (1/D)
  18. ADDERALL 10 [Concomitant]
     Dosage: 20 MG, 2/D
  19. CLONIDINE [Concomitant]
     Dosage: 0.1 MG, UNK
  20. FLEXERIL [Concomitant]
     Dosage: 2 D/F, EACH EVENING
  21. OMEPRAZOLE [Concomitant]
  22. TYLENOL EXTRA STRENGTH [Concomitant]
  23. OXYCODONE HCL [Concomitant]
     Dosage: 15 MG, UNK
  24. ZINC [Concomitant]

REACTIONS (12)
  - ARTHRALGIA [None]
  - BACK PAIN [None]
  - BONE DENSITY DECREASED [None]
  - BONE PAIN [None]
  - FATIGUE [None]
  - INJECTION SITE HAEMORRHAGE [None]
  - INJECTION SITE PAIN [None]
  - MUSCLE SPASMS [None]
  - ORAL PAIN [None]
  - PAIN [None]
  - PELVIC FRACTURE [None]
  - STRESS FRACTURE [None]
